FAERS Safety Report 9024329 (Version 4)
Quarter: 2013Q2

REPORT INFORMATION
  Report Type: Spontaneous
  Country: BR (occurrence: BR)
  Receive Date: 20130121
  Receipt Date: 20130514
  Transmission Date: 20140414
  Serious: Yes (Hospitalization, Other)
  Sender: FDA-Public Use
  Company Number: PHHY2013BR002846

PATIENT
  Age: 84 Year
  Sex: Female
  Weight: 55 kg

DRUGS (1)
  1. FORASEQ [Suspect]
     Indication: EMPHYSEMA
     Dosage: 3 DF, DAILY

REACTIONS (6)
  - Increased bronchial secretion [Recovered/Resolved]
  - Brain hypoxia [Recovering/Resolving]
  - Heart rate irregular [Recovering/Resolving]
  - Dementia Alzheimer^s type [Not Recovered/Not Resolved]
  - Herpes virus infection [Recovering/Resolving]
  - Wrong technique in drug usage process [Not Recovered/Not Resolved]
